FAERS Safety Report 13580760 (Version 4)
Quarter: 2017Q2

REPORT INFORMATION
  Report Type: Spontaneous
  Country: IT (occurrence: IT)
  Receive Date: 20170525
  Receipt Date: 20170621
  Transmission Date: 20170830
  Serious: Yes (Hospitalization, Other)
  Sender: FDA-Public Use
  Company Number: IT-ROCHE-1937791

PATIENT
  Age: 72 Year
  Sex: Female
  Weight: 79 kg

DRUGS (5)
  1. HERCEPTIN [Suspect]
     Active Substance: TRASTUZUMAB
     Indication: BREAST CANCER
     Dosage: MOST RECENT DOSE PRIOR TO ONSET OF ERYTHEMA AND BURNING SENSATION SKIN: 17/FEB/2017?MOST RECENT DOSE
     Route: 042
     Dates: start: 20170111
  2. DEXAMETHASONE. [Concomitant]
     Active Substance: DEXAMETHASONE
     Dosage: MOST RECENT DOSES ON: 17/FEB/2017 AND 24/MAR/2017.
     Route: 042
     Dates: start: 20170111
  3. CARBOPLATIN ACCORD [Suspect]
     Active Substance: CARBOPLATIN
     Indication: BREAST CANCER
     Dosage: MOST RECENT DOSE PRIOR TO ONSET OF ERYTHEMA AND BURNING SENSATION SKIN: 17/FEB/2017?MOST RECENT DOSE
     Route: 042
     Dates: start: 20170111
  4. DOCETAXEL SANDOZ [Suspect]
     Active Substance: DOCETAXEL
     Indication: BREAST CANCER
     Dosage: MOST RECENT DOSE PRIOR TO ONSET OF ERYTHEMA AND BURNING SENSATION SKIN: 17/FEB/2017?MOST RECENT DOSE
     Route: 042
     Dates: start: 20170111
  5. ONDANSETRON HIKMA [Concomitant]
     Active Substance: ONDANSETRON
     Dosage: MOST RECENT DOSES ON: 17/FEB/2017 AND 24/MAR/2017.
     Route: 042
     Dates: start: 20170111

REACTIONS (15)
  - Atrial fibrillation [Unknown]
  - Pruritus [Unknown]
  - Thrombocytopenia [Recovered/Resolved with Sequelae]
  - Neutropenia [Recovered/Resolved with Sequelae]
  - Staphylococcal sepsis [Recovered/Resolved with Sequelae]
  - Skin burning sensation [Recovering/Resolving]
  - Anaemia [Recovered/Resolved with Sequelae]
  - Neurotoxicity [Unknown]
  - Nail discolouration [Unknown]
  - Leukopenia [Unknown]
  - Paronychia [Unknown]
  - Corneal bleeding [Unknown]
  - Erythema [Recovering/Resolving]
  - Hypokalaemic syndrome [Recovered/Resolved with Sequelae]
  - Oedema peripheral [Unknown]

NARRATIVE: CASE EVENT DATE: 20170217
